FAERS Safety Report 6693937-4 (Version None)
Quarter: 2010Q2

REPORT INFORMATION
  Report Type: 
  Country: None (occurrence: None)
  Receive Date: 20100423
  Receipt Date: 20100412
  Transmission Date: 20101027
  Serious: Yes (Hospitalization, Other)
  Sender: FDA-Public Use
  Company Number: JP-PFIZER INC-2009294017

PATIENT
  Age: 69 Year
  Sex: Male
  Weight: 66 kg

DRUGS (10)
  1. SELARA [Suspect]
     Indication: CARDIAC FAILURE
     Dosage: 25 MG, DAILY
     Route: 048
     Dates: start: 20090425, end: 20091022
  2. SELARA [Suspect]
     Indication: ARTERIOSCLEROSIS CORONARY ARTERY
  3. SELARA [Suspect]
     Indication: HYPERTENSION
  4. CRESTOR [Suspect]
     Indication: DYSLIPIDAEMIA
     Dosage: 2.5 MG, 2X/DAY
     Route: 048
     Dates: start: 20090425
  5. ARTIST [Suspect]
     Indication: CARDIAC FAILURE
     Dosage: 10 MG, 1X/DAY
     Route: 048
     Dates: start: 20090425
  6. ASPIRIN [Concomitant]
     Dosage: UNK
     Route: 048
     Dates: start: 20090425
  7. ZETIA [Concomitant]
     Dosage: UNK
     Route: 048
     Dates: start: 20090425
  8. PLAVIX [Concomitant]
     Dosage: UNK
     Route: 048
     Dates: start: 20090425
  9. PARIET [Concomitant]
     Dosage: UNK
     Route: 048
     Dates: start: 20090425
  10. LASIX [Concomitant]
     Dosage: UNK
     Route: 048
     Dates: start: 20090425

REACTIONS (4)
  - ABDOMINAL DISCOMFORT [None]
  - ALBUMIN URINE [None]
  - DECREASED APPETITE [None]
  - DIABETES MELLITUS [None]
